FAERS Safety Report 17713328 (Version 1)
Quarter: 2020Q2

REPORT INFORMATION
  Report Type: Spontaneous
  Country: US (occurrence: US)
  Receive Date: 20200427
  Receipt Date: 20200427
  Transmission Date: 20200714
  Serious: No
  Sender: FDA-Public Use
  Company Number: None

PATIENT
  Age: 76 Year
  Sex: Female
  Weight: 73.8 kg

DRUGS (13)
  1. DOXYCYCLINE MONOHYDRATE [Concomitant]
     Active Substance: DOXYCYCLINE
  2. TOPICAL STEROID CREAMS [Concomitant]
     Active Substance: UNSPECIFIED INGREDIENT
  3. AMLODIPINE [Concomitant]
     Active Substance: AMLODIPINE BESYLATE
  4. ALBUTEROL. [Concomitant]
     Active Substance: ALBUTEROL
  5. VITAMIN D [Concomitant]
     Active Substance: VITAMIN D NOS
  6. MULTIIVITAMIN [Concomitant]
  7. DOXYCYCLINE MONOHYDRATE 100MG [Suspect]
     Active Substance: DOXYCYCLINE
  8. URSODIOL. [Concomitant]
     Active Substance: URSODIOL
  9. CALCIUM [Concomitant]
     Active Substance: CALCIUM
  10. PREDNISONE 20MG TABLETS [Suspect]
     Active Substance: PREDNISONE
     Indication: ASTHMA
     Dosage: ?          QUANTITY:1 TABLET(S);?
     Route: 048
  11. CLOBETASOL PROPIONATE. [Concomitant]
     Active Substance: CLOBETASOL PROPIONATE
  12. CORICIDIN COLD AND COUGH [Concomitant]
  13. ATENOLOL. [Concomitant]
     Active Substance: ATENOLOL

REACTIONS (1)
  - Oedema peripheral [None]

NARRATIVE: CASE EVENT DATE: 20200424
